FAERS Safety Report 8275025-9 (Version None)
Quarter: 2012Q2

REPORT INFORMATION
  Report Type: 
  Country: None (occurrence: None)
  Receive Date: 20120411
  Receipt Date: 20120327
  Transmission Date: 20120825
  Serious: No
  Sender: FDA-Public Use
  Company Number: US-ENDO PHARMACEUTICALS INC.-OPER20120458

PATIENT
  Sex: Female

DRUGS (1)
  1. OPANA ER [Suspect]
     Indication: SPINAL FUSION SURGERY
     Route: 048
     Dates: start: 20120327

REACTIONS (5)
  - URTICARIA [None]
  - HYPERSENSITIVITY [None]
  - RASH [None]
  - DRUG DISPENSING ERROR [None]
  - HEADACHE [None]
